FAERS Safety Report 7520853-8 (Version None)
Quarter: 2011Q2

REPORT INFORMATION
  Report Type: 
  Country: None (occurrence: None)
  Receive Date: 20110603
  Receipt Date: 20100927
  Transmission Date: 20111010
  Serious: Yes (Life-Threatening, Other)
  Sender: FDA-Public Use
  Company Number: FR-BAYER-201040729GPV

PATIENT
  Age: 32 Year
  Sex: Female

DRUGS (1)
  1. ULTRAVIST 370 [Suspect]
     Indication: COMPUTERISED TOMOGRAM ABDOMEN
     Route: 042
     Dates: start: 20100818, end: 20100818

REACTIONS (8)
  - MECHANICAL VENTILATION [None]
  - LEFT VENTRICULAR FAILURE [None]
  - LARYNX IRRITATION [None]
  - HYPOTENSION [None]
  - RESPIRATORY DISTRESS [None]
  - CIRCULATORY COLLAPSE [None]
  - COUGH [None]
  - ACUTE PULMONARY OEDEMA [None]
